FAERS Safety Report 13021301 (Version 2)
Quarter: 2017Q4

REPORT INFORMATION
  Report Type: Spontaneous
  Country: US (occurrence: US)
  Receive Date: 20161213
  Receipt Date: 20171211
  Transmission Date: 20180320
  Serious: No
  Sender: FDA-Public Use
  Company Number: US-ZYDUS-011926

PATIENT
  Age: 51 Year
  Sex: Male

DRUGS (1)
  1. RISPERIDONE. [Suspect]
     Active Substance: RISPERIDONE
     Indication: PRODUCT USED FOR UNKNOWN INDICATION
     Route: 048
     Dates: start: 201511

REACTIONS (4)
  - Insomnia [Recovered/Resolved]
  - Testicular pain [Not Recovered/Not Resolved]
  - Cognitive disorder [Recovered/Resolved]
  - Bipolar I disorder [Unknown]

NARRATIVE: CASE EVENT DATE: 201610
